FAERS Safety Report 19961773 (Version 1)
Quarter: 2021Q4

REPORT INFORMATION
  Report Type: Report from Study
  Country: BR (occurrence: BR)
  Receive Date: 20211018
  Receipt Date: 20211018
  Transmission Date: 20220303
  Serious: Yes (Other)
  Sender: FDA-Public Use
  Company Number: BR-NOVARTISPH-NVSC2021BR233072

PATIENT
  Age: 57 Year
  Sex: Female

DRUGS (5)
  1. ATENOLOL [Suspect]
     Active Substance: ATENOLOL
     Indication: Product used for unknown indication
     Dosage: UNK
     Route: 065
  2. IMATINIB. [Suspect]
     Active Substance: IMATINIB MESYLATE
     Indication: Product used for unknown indication
     Dosage: 400 MG, QD
     Route: 065
     Dates: start: 201910
  3. ROSUVASTATIN [Suspect]
     Active Substance: ROSUVASTATIN
     Indication: Dyslipidaemia
     Dosage: UNK
     Route: 065
  4. AMLODIPINE [Suspect]
     Active Substance: AMLODIPINE BESYLATE
     Indication: Product used for unknown indication
     Dosage: UNK
     Route: 065
  5. HYDROXYUREA [Concomitant]
     Active Substance: HYDROXYUREA
     Indication: Product used for unknown indication
     Dosage: UNK
     Route: 065

REACTIONS (18)
  - Abdominal distension [Unknown]
  - Aspartate aminotransferase increased [Unknown]
  - Alanine aminotransferase increased [Unknown]
  - Escherichia infection [Unknown]
  - Abdominal discomfort [Unknown]
  - Change of bowel habit [Unknown]
  - Abdominal pain [Unknown]
  - Abnormal faeces [Unknown]
  - Thrombocytosis [Unknown]
  - Cytogenetic analysis abnormal [Unknown]
  - Condition aggravated [Unknown]
  - Urinary tract infection [Unknown]
  - Platelet count decreased [Unknown]
  - Transaminases increased [Unknown]
  - Constipation [Unknown]
  - Diarrhoea [Unknown]
  - Treatment failure [Unknown]
  - Abdominal neoplasm [Unknown]
